FAERS Safety Report 20737013 (Version 1)
Quarter: 2022Q2

REPORT INFORMATION
  Report Type: Spontaneous
  Country: US (occurrence: US)
  Receive Date: 20220421
  Receipt Date: 20220421
  Transmission Date: 20220720
  Serious: No
  Sender: FDA-Public Use
  Company Number: US-PFIZER INC-202101311774

PATIENT
  Age: 60 Year
  Sex: Male
  Weight: 93.44 kg

DRUGS (1)
  1. CELEBREX [Suspect]
     Active Substance: CELECOXIB
     Indication: Ulcer
     Dosage: 100MG, 2X/DAY (100MG 1 CAPSULE BY MOUTH TWICE A DAY)
     Route: 048
     Dates: start: 2001

REACTIONS (5)
  - Therapeutic product effect incomplete [Unknown]
  - Thermal burn [Unknown]
  - Swelling [Unknown]
  - Emotional disorder [Unknown]
  - Ulcer [Unknown]

NARRATIVE: CASE EVENT DATE: 20210901
